FAERS Safety Report 5266297-3 (Version None)
Quarter: 2007Q1

REPORT INFORMATION
  Report Type: 
  Country: None (occurrence: None)
  Receive Date: 20070315
  Receipt Date: 20070305
  Transmission Date: 20070707
  Serious: Yes (Death, Hospitalization)
  Sender: FDA-Public Use
  Company Number: US-ROCHE-473065

PATIENT
  Age: 63 Year
  Sex: Female

DRUGS (8)
  1. BONIVA [Suspect]
     Indication: DRUG USE FOR UNKNOWN INDICATION
     Route: 048
     Dates: start: 20061009, end: 20061113
  2. BACTRIM [Concomitant]
     Route: 048
     Dates: end: 20061113
  3. PROZAC [Concomitant]
  4. UNSPECIFIED DRUG [Concomitant]
     Dosage: DRUG REPORTED AS CEDIA
  5. INDERAL [Concomitant]
  6. LUNESTA [Concomitant]
  7. CALCIUM [Concomitant]
  8. WELCHOL [Concomitant]

REACTIONS (6)
  - ACUTE GENERALISED EXANTHEMATOUS PUSTULOSIS [None]
  - CEREBROVASCULAR ACCIDENT [None]
  - DEATH [None]
  - FATIGUE [None]
  - RASH [None]
  - VISUAL DISTURBANCE [None]
